FAERS Safety Report 8582141-0 (Version None)
Quarter: 2012Q3

REPORT INFORMATION
  Report Type: 
  Country: None (occurrence: None)
  Receive Date: 20120809
  Receipt Date: 20120806
  Transmission Date: 20120928
  Serious: Yes (Hospitalization)
  Sender: FDA-Public Use
  Company Number: IT-PFIZER INC-2012191721

PATIENT
  Age: 64 Year
  Sex: Male

DRUGS (9)
  1. ORAMORPH SR [Concomitant]
  2. GEMCITABINE [Suspect]
     Indication: LUNG ADENOCARCINOMA
     Dosage: 1000 MG/M2, UNK
     Dates: start: 20120712, end: 20120712
  3. TACHIDOL [Concomitant]
  4. BECLOMETHASONE DIPROPIONATE [Concomitant]
  5. CARBOPLATIN [Suspect]
     Indication: LUNG ADENOCARCINOMA
     Dosage: 400 UG/M2
     Route: 042
     Dates: start: 20120712, end: 20120712
  6. MEDROL [Concomitant]
  7. FRAGMIN [Concomitant]
  8. OXIVENT [Concomitant]
  9. MORPHINE SULFATE [Concomitant]

REACTIONS (4)
  - ABDOMINAL PAIN [None]
  - PANCREATIC DISORDER [None]
  - DIARRHOEA [None]
  - HEPATITIS ACUTE [None]
